FAERS Safety Report 4344381-6 (Version None)
Quarter: 2004Q2

REPORT INFORMATION
  Report Type: 
  Country: None (occurrence: None)
  Receive Date: 20040419
  Receipt Date: 20040407
  Transmission Date: 20050107
  Serious: Yes (Other)
  Sender: FDA-Public Use
  Company Number: 2004207947FR

PATIENT
  Sex: Female

DRUGS (2)
  1. ZYVOXID (LINEZOLID) TABLET [Suspect]
     Indication: ARTHRITIS BACTERIAL
  2. FUCIDINE CAP [Concomitant]

REACTIONS (2)
  - CYTOLYTIC HEPATITIS [None]
  - HEPATITIS CHOLESTATIC [None]
